FAERS Safety Report 9871282 (Version 3)
Quarter: 2014Q1

REPORT INFORMATION
  Report Type: Spontaneous
  Country: JP (occurrence: JP)
  Receive Date: 20140205
  Receipt Date: 20140318
  Transmission Date: 20141002
  Serious: Yes (Hospitalization, Disabling)
  Sender: FDA-Public Use
  Company Number: JP-GLAXOSMITHKLINE-B0953808A

PATIENT
  Age: 80 Year
  Sex: Male

DRUGS (13)
  1. REQUIP [Suspect]
     Indication: PARKINSON^S DISEASE
     Dosage: 2MG PER DAY
     Route: 048
     Dates: start: 20130917, end: 20131115
  2. REQUIP [Suspect]
     Indication: PARKINSON^S DISEASE
     Dosage: 1MG PER DAY
     Route: 048
     Dates: start: 20110311
  3. REQUIP [Suspect]
     Indication: PARKINSON^S DISEASE
     Route: 048
     Dates: end: 20130916
  4. REQUIP [Suspect]
     Indication: PARKINSON^S DISEASE
     Dosage: 1MG PER DAY
     Route: 048
     Dates: start: 20130917, end: 20131017
  5. MADOPAR [Concomitant]
     Indication: PARKINSON^S DISEASE
     Dosage: 100MG FOUR TIMES PER DAY
     Route: 048
  6. PERMAX [Concomitant]
     Indication: PARKINSON^S DISEASE
     Dosage: 250MCG THREE TIMES PER DAY
     Route: 048
  7. FP [Concomitant]
     Indication: PARKINSON^S DISEASE
     Dosage: 2.5MG TWICE PER DAY
     Route: 048
     Dates: start: 20050617
  8. CABASER [Concomitant]
     Indication: PARKINSON^S DISEASE
     Dosage: 1MG TWICE PER DAY
     Route: 048
     Dates: start: 20050617
  9. DOPS [Concomitant]
     Indication: PARKINSON^S DISEASE
     Dosage: 100MG TWICE PER DAY
     Route: 048
     Dates: start: 20050617
  10. MAGLAX [Concomitant]
     Indication: CONSTIPATION
     Dosage: 500MG THREE TIMES PER DAY
     Route: 048
     Dates: start: 20100929
  11. COMTAN [Concomitant]
     Indication: PARKINSON^S DISEASE
     Dosage: 100MG THREE TIMES PER DAY
     Route: 048
     Dates: start: 20080509
  12. NEOMALLERMIN [Concomitant]
     Indication: DERMATITIS ALLERGIC
     Dosage: 6MG PER DAY
     Route: 048
     Dates: start: 20100929, end: 20131215
  13. GRAMALIL [Concomitant]
     Indication: DELIRIUM
     Dosage: 25MG PER DAY
     Route: 048
     Dates: start: 20130315

REACTIONS (9)
  - Aphagia [Unknown]
  - Delirium [Recovered/Resolved with Sequelae]
  - Dyskinesia [Recovered/Resolved with Sequelae]
  - Speech disorder [Unknown]
  - Psychomotor hyperactivity [Unknown]
  - Decubitus ulcer [Unknown]
  - Feeding disorder [Unknown]
  - Dysphagia [Not Recovered/Not Resolved]
  - Gait disturbance [Not Recovered/Not Resolved]
